FAERS Safety Report 25440953 (Version 1)
Quarter: 2025Q2

REPORT INFORMATION
  Report Type: Spontaneous
  Country: US (occurrence: US)
  Receive Date: 20250616
  Receipt Date: 20250616
  Transmission Date: 20250716
  Serious: Yes (Other)
  Sender: BLUEPRINT MEDICINES
  Company Number: US-Blueprint Medicines Corporation-2025-AER-01276

PATIENT
  Age: 59 Year
  Sex: Female

DRUGS (1)
  1. AYVAKIT [Suspect]
     Active Substance: AVAPRITINIB
     Indication: Systemic mastocytosis
     Route: 065
     Dates: start: 20250503

REACTIONS (7)
  - Apnoea [Unknown]
  - Oedema [Unknown]
  - Ageusia [Unknown]
  - Hangover [Unknown]
  - Headache [Unknown]
  - Pain [Unknown]
  - Alopecia [Unknown]
